FAERS Safety Report 6229123-1 (Version None)
Quarter: 2009Q2

REPORT INFORMATION
  Report Type: 
  Country: None (occurrence: None)
  Receive Date: 20090615
  Receipt Date: 20090609
  Transmission Date: 20091009
  Serious: Yes (Other)
  Sender: FDA-Public Use
  Company Number: JP-ASTRAZENECA-2009SE02492

PATIENT
  Age: 30 Year
  Sex: Female

DRUGS (2)
  1. XYLOCAINE [Suspect]
     Dosage: DOSE UNKNOWN
     Route: 065
  2. MARCAINE [Suspect]
     Dosage: DOSE UNKNOWN
     Route: 037

REACTIONS (1)
  - ANAPHYLACTIC SHOCK [None]
